FAERS Safety Report 17079349 (Version 1)
Quarter: 2019Q4

REPORT INFORMATION
  Report Type: Spontaneous
  Country: US (occurrence: US)
  Receive Date: 20191127
  Receipt Date: 20191127
  Transmission Date: 20200122
  Serious: Yes (Other)
  Sender: FDA-Public Use
  Company Number: US-UCBSA-2019017164

PATIENT
  Age: 78 Year
  Sex: Female
  Weight: 138 kg

DRUGS (5)
  1. VIMPAT [Suspect]
     Active Substance: LACOSAMIDE
     Indication: SEIZURE
     Dosage: 50 MILLIGRAM, ONCE DAILY (QD)
     Dates: start: 201701
  2. AMLODIPINE [Concomitant]
     Active Substance: AMLODIPINE BESYLATE
     Indication: PRODUCT USED FOR UNKNOWN INDICATION
  3. VIMPAT [Suspect]
     Active Substance: LACOSAMIDE
     Dosage: 25 MG
     Dates: end: 201901
  4. VIMPAT [Suspect]
     Active Substance: LACOSAMIDE
     Dosage: 2X/DAY (BID) 50 MG QAM AND 75 MG QPM (HALVED A TABLET)
  5. LORAZEPAM. [Concomitant]
     Active Substance: LORAZEPAM
     Indication: PRODUCT USED FOR UNKNOWN INDICATION

REACTIONS (6)
  - Gait disturbance [Recovered/Resolved]
  - Intentional product misuse [Unknown]
  - Memory impairment [Recovered/Resolved]
  - Underdose [Unknown]
  - Off label use [Unknown]
  - Tremor [Recovered/Resolved]

NARRATIVE: CASE EVENT DATE: 201701
